FAERS Safety Report 9701423 (Version 2)
Quarter: 2013Q4

REPORT INFORMATION
  Report Type: Spontaneous
  Country: US (occurrence: US)
  Receive Date: 20131121
  Receipt Date: 20131121
  Transmission Date: 20140711
  Serious: No
  Sender: FDA-Public Use
  Company Number: US-GILEAD-2008-0016495

PATIENT
  Age: 41 Year
  Sex: Female

DRUGS (7)
  1. LETAIRIS [Suspect]
     Indication: PULMONARY ARTERIAL HYPERTENSION
     Route: 048
     Dates: start: 20080512
  2. REMODULIN [Concomitant]
     Dates: start: 20050810
  3. ZIAGEN [Concomitant]
  4. SUSTIVA [Concomitant]
  5. VIREAD [Concomitant]
  6. ZOLOFT [Concomitant]
  7. COUMADIN [Concomitant]

REACTIONS (3)
  - Dizziness [Recovered/Resolved]
  - Nausea [Recovered/Resolved]
  - Headache [Not Recovered/Not Resolved]
